FAERS Safety Report 6415322-2 (Version None)
Quarter: 2009Q4

REPORT INFORMATION
  Report Type: 
  Country: None (occurrence: None)
  Receive Date: 20091027
  Receipt Date: 20091014
  Transmission Date: 20100525
  Serious: Yes (Other)
  Sender: FDA-Public Use
  Company Number: PHHY2009JP42268

PATIENT
  Age: 50 Year
  Sex: Male

DRUGS (2)
  1. NEORAL [Suspect]
     Indication: APLASTIC ANAEMIA
     Dosage: 350 MG DAILY
     Route: 048
     Dates: start: 20081128
  2. PREDNISOLONE [Concomitant]
     Indication: MYASTHENIA GRAVIS
     Dosage: 5 TO 10 MG/DAY
     Dates: start: 20071001

REACTIONS (2)
  - PANCYTOPENIA [None]
  - RENAL IMPAIRMENT [None]
